FAERS Safety Report 20111550 (Version 1)
Quarter: 2021Q4

REPORT INFORMATION
  Report Type: Spontaneous
  Country: US (occurrence: US)
  Receive Date: 20211125
  Receipt Date: 20211125
  Transmission Date: 20220303
  Serious: No
  Sender: FDA-Public Use
  Company Number: US-CHIESI-2020CHF06261

PATIENT
  Age: 5 Year
  Sex: Female

DRUGS (2)
  1. BETHKIS [Suspect]
     Active Substance: TOBRAMYCIN
     Indication: Tracheostomy
     Dosage: 300 MILLIGRAM, BID
     Route: 055
     Dates: start: 202012
  2. BETHKIS [Suspect]
     Active Substance: TOBRAMYCIN
     Indication: Off label use

REACTIONS (2)
  - Off label use [Not Recovered/Not Resolved]
  - Off label use [Not Recovered/Not Resolved]

NARRATIVE: CASE EVENT DATE: 20201201
